FAERS Safety Report 4895632-0 (Version None)
Quarter: 2006Q1

REPORT INFORMATION
  Report Type: 
  Country: None (occurrence: None)
  Receive Date: 20060125
  Receipt Date: 20060112
  Transmission Date: 20060701
  Serious: Yes (Other)
  Sender: FDA-Public Use
  Company Number: 221057

PATIENT
  Age: 57 Year
  Sex: Male

DRUGS (2)
  1. AVASTIN [Suspect]
     Indication: COLORECTAL CANCER METASTATIC
     Dates: start: 20050701
  2. XELODA [Concomitant]

REACTIONS (2)
  - DEEP VEIN THROMBOSIS [None]
  - PERICARDIAL EFFUSION [None]
